FAERS Safety Report 14282750 (Version 1)
Quarter: 2017Q4

REPORT INFORMATION
  Report Type: Spontaneous
  Country: US (occurrence: US)
  Receive Date: 20171213
  Receipt Date: 20171213
  Transmission Date: 20180321
  Serious: Yes (Other)
  Sender: FDA-Public Use
  Company Number: US-FRESENIUS KABI-FK201710835

PATIENT
  Age: 41 Year
  Sex: Male

DRUGS (9)
  1. LURASIDONE [Suspect]
     Active Substance: LURASIDONE
     Indication: DRUG THERAPY
     Route: 065
  2. LURASIDONE [Suspect]
     Active Substance: LURASIDONE
     Route: 065
  3. HALOPERIDOL INJECTION (MANUFACTURER UNKNOWN) [Suspect]
     Active Substance: HALOPERIDOL LACTATE
     Indication: DRUG THERAPY
     Route: 065
  4. HALOPERIDOL INJECTION (MANUFACTURER UNKNOWN) [Suspect]
     Active Substance: HALOPERIDOL LACTATE
     Route: 065
  5. LURASIDONE [Suspect]
     Active Substance: LURASIDONE
     Route: 065
  6. HALOPERIDOL INJECTION (MANUFACTURER UNKNOWN) [Suspect]
     Active Substance: HALOPERIDOL LACTATE
     Route: 065
  7. LURASIDONE [Suspect]
     Active Substance: LURASIDONE
     Route: 065
  8. LURASIDONE [Suspect]
     Active Substance: LURASIDONE
     Route: 065
  9. LURASIDONE [Suspect]
     Active Substance: LURASIDONE
     Route: 065

REACTIONS (1)
  - Agranulocytosis [Recovered/Resolved]
